FAERS Safety Report 17756355 (Version 2)
Quarter: 2020Q2

REPORT INFORMATION
  Report Type: Spontaneous
  Country: PL (occurrence: PL)
  Receive Date: 20200507
  Receipt Date: 20200528
  Transmission Date: 20200714
  Serious: Yes (Other)
  Sender: FDA-Public Use
  Company Number: NVSC2020PL122087

PATIENT
  Age: 38 Year
  Sex: Female

DRUGS (3)
  1. METHOTREXATE. [Suspect]
     Active Substance: METHOTREXATE
     Indication: GRANULOMATOSIS WITH POLYANGIITIS
     Dosage: 15 MG (WEEKLY)
     Route: 065
     Dates: end: 200509
  2. INFLIXIMAB [Suspect]
     Active Substance: INFLIXIMAB
     Indication: GRANULOMATOSIS WITH POLYANGIITIS
     Dosage: 200 MG (6 INFUSION)
     Route: 065
     Dates: start: 200412, end: 200509
  3. METHYLPREDNISOLONE. [Concomitant]
     Active Substance: METHYLPREDNISOLONE
     Indication: GRANULOMATOSIS WITH POLYANGIITIS
     Dosage: UNK (12MG/24 H)
     Route: 048
     Dates: end: 200509

REACTIONS (4)
  - Respiratory failure [Recovered/Resolved]
  - Off label use [Unknown]
  - Emphysema [Recovered/Resolved]
  - Drug ineffective for unapproved indication [Recovered/Resolved]
